FAERS Safety Report 5647955-5 (Version None)
Quarter: 2008Q1

REPORT INFORMATION
  Report Type: 
  Country: None (occurrence: None)
  Receive Date: 20080229
  Receipt Date: 20080222
  Transmission Date: 20080703
  Serious: Yes (Other)
  Sender: FDA-Public Use
  Company Number: 2008S1001284

PATIENT
  Age: 75 Year
  Sex: Female
  Weight: 63.5036 kg

DRUGS (1)
  1. FLEET GLYCERIN ADULT SUPPOSITORIES [Suspect]
     Indication: LAXATIVE SUPPORTIVE CARE
     Dosage: 2 GM; X1; RTL
     Route: 054
     Dates: start: 20080101, end: 20080101

REACTIONS (4)
  - ANORECTAL DISCOMFORT [None]
  - DRUG INEFFECTIVE [None]
  - PROCTALGIA [None]
  - SKIN INFLAMMATION [None]
